FAERS Safety Report 5090396-2 (Version None)
Quarter: 2006Q3

REPORT INFORMATION
  Report Type: 
  Country: None (occurrence: None)
  Receive Date: 20060828
  Receipt Date: 20060825
  Transmission Date: 20061208
  Serious: Yes (Other)
  Sender: FDA-Public Use
  Company Number: PHBS2006CH12846

PATIENT
  Age: 83 Year
  Sex: Male

DRUGS (3)
  1. MIACALCIN [Suspect]
     Dosage: UNK, QD
     Route: 045
     Dates: start: 20060301, end: 20060301
  2. MORPHINE [Suspect]
     Dosage: 30 MG/DAY
  3. EFFEXOR [Concomitant]
     Dosage: 150 MG/DAY
     Dates: end: 20060226

REACTIONS (2)
  - DELIRIUM [None]
  - HALLUCINATION [None]
